FAERS Safety Report 7212242-0 (Version None)
Quarter: 2010Q4

REPORT INFORMATION
  Report Type: 
  Country: None (occurrence: None)
  Receive Date: 20101227
  Receipt Date: 20101216
  Transmission Date: 20110411
  Serious: Yes (Hospitalization)
  Sender: FDA-Public Use
  Company Number: 2010EU005701

PATIENT
  Age: 37 Year
  Sex: Female

DRUGS (5)
  1. FK463 (MICAFUNGIN) INJECTION [Suspect]
     Indication: ANTIFUNGAL PROPHYLAXIS
     Dosage: IV NOS
     Route: 042
     Dates: start: 20100907, end: 20100927
  2. TACROLIMUS [Concomitant]
  3. CELLCEPT [Concomitant]
  4. MEDROL [Concomitant]
  5. PANTOMED (PANTOPRAZOLE SODIUM) [Concomitant]

REACTIONS (6)
  - ABDOMINAL PAIN [None]
  - CYTOMEGALOVIRUS INFECTION [None]
  - DIARRHOEA [None]
  - NAUSEA [None]
  - VOMITING [None]
  - WEIGHT DECREASED [None]
